FAERS Safety Report 9222649 (Version 1)
Quarter: 2013Q2

REPORT INFORMATION
  Report Type: Spontaneous
  Country: IT (occurrence: IT)
  Receive Date: 20130410
  Receipt Date: 20130410
  Transmission Date: 20140414
  Serious: Yes (Hospitalization)
  Sender: FDA-Public Use
  Company Number: PHHY2013IT034144

PATIENT
  Sex: Male

DRUGS (5)
  1. GABAPENTIN [Suspect]
     Indication: DIABETIC NEUROPATHY
     Dosage: 600 MG, DAILY
     Route: 048
     Dates: start: 20130328, end: 20130330
  2. CARDICOR [Concomitant]
     Indication: CARDIAC FAILURE
  3. TRENTAL [Concomitant]
     Indication: DIABETIC VASCULAR DISORDER
  4. AMLODIPINE [Concomitant]
     Indication: HYPERTENSION
  5. FUROSEMIDE [Concomitant]
     Indication: RENAL FAILURE CHRONIC

REACTIONS (3)
  - Rhabdomyolysis [Recovering/Resolving]
  - Hypotension [Recovering/Resolving]
  - Asthenia [Recovering/Resolving]
